FAERS Safety Report 8859974 (Version 2)
Quarter: 2012Q4

REPORT INFORMATION
  Report Type: 
  Country: US (occurrence: US)
  Receive Date: 20121025
  Receipt Date: 20121226
  Transmission Date: 20130627
  Serious: Yes (Other)
  Sender: FDA-Public Use
  Company Number: US-PFIZER INC-2012262423

PATIENT
  Age: 55 Year
  Sex: Female
  Weight: 85 kg

DRUGS (4)
  1. PREMARIN [Suspect]
     Indication: HORMONE REPLACEMENT THERAPY
     Dosage: 1.25 mg, UNK
     Route: 048
  2. COREG [Concomitant]
     Indication: BLOOD PRESSURE HIGH
     Dosage: 25 mg, UNK
  3. CLONIDINE [Concomitant]
     Indication: BLOOD PRESSURE HIGH
     Dosage: 0.1 mg, UNK
  4. BENAZEPRIL [Concomitant]
     Indication: BLOOD PRESSURE HIGH
     Dosage: 40 mg, UNK

REACTIONS (2)
  - Depression [Not Recovered/Not Resolved]
  - Anxiety [Not Recovered/Not Resolved]
